FAERS Safety Report 23268049 (Version 2)
Quarter: 2023Q4

REPORT INFORMATION
  Report Type: Spontaneous
  Country: US (occurrence: US)
  Receive Date: 20231206
  Receipt Date: 20231206
  Transmission Date: 20240110
  Serious: No
  Sender: FDA-Public Use
  Company Number: US-ALKERMES INC.-ALK-2023-004493

PATIENT

DRUGS (2)
  1. ARISTADA [Suspect]
     Active Substance: ARIPIPRAZOLE LAUROXIL
     Indication: Schizoaffective disorder bipolar type
     Dosage: UNK MILLIGRAM
     Route: 030
  2. ARISTADA INITIO [Suspect]
     Active Substance: ARIPIPRAZOLE LAUROXIL
     Indication: Schizoaffective disorder bipolar type
     Dosage: 675 MILLIGRAM, ONE TIME DOSE
     Route: 030

REACTIONS (6)
  - Tremor [Unknown]
  - Wrong technique in product usage process [Unknown]
  - Off label use [Not Recovered/Not Resolved]
  - Paranoia [Unknown]
  - Injection site pain [Unknown]
  - Restlessness [Unknown]
